FAERS Safety Report 13080588 (Version 2)
Quarter: 2017Q1

REPORT INFORMATION
  Report Type: Report from Study
  Country: DE (occurrence: DE)
  Receive Date: 20170103
  Receipt Date: 20170106
  Transmission Date: 20170428
  Serious: Yes (Death, Hospitalization, Other)
  Sender: FDA-Public Use
  Company Number: DE-JNJFOC-20170100576

PATIENT
  Age: 87 Year
  Sex: Female
  Weight: 62 kg

DRUGS (1)
  1. XARELTO [Suspect]
     Active Substance: RIVAROXABAN
     Indication: PRODUCT USED FOR UNKNOWN INDICATION
     Route: 048

REACTIONS (9)
  - Peripheral embolism [Recovered/Resolved with Sequelae]
  - Haematochezia [Unknown]
  - Lactic acidosis [Unknown]
  - Ischaemic stroke [Fatal]
  - Mesenteric artery embolism [Unknown]
  - Acute kidney injury [Fatal]
  - Lactic acidosis [Fatal]
  - Splenic infarction [Unknown]
  - Subclavian artery embolism [Recovered/Resolved with Sequelae]

NARRATIVE: CASE EVENT DATE: 201611
